FAERS Safety Report 9227953 (Version 1)
Quarter: 2013Q2

REPORT INFORMATION
  Report Type: Spontaneous
  Country: CN (occurrence: CN)
  Receive Date: 20130412
  Receipt Date: 20130412
  Transmission Date: 20140414
  Serious: Yes (Other)
  Sender: FDA-Public Use
  Company Number: CN-SANOFI-AVENTIS-2013SA034604

PATIENT
  Age: 62 Year
  Sex: Female
  Weight: 69 kg

DRUGS (5)
  1. STILNOX [Suspect]
     Indication: POOR QUALITY SLEEP
     Route: 048
     Dates: start: 20130216, end: 20130224
  2. MERISLON [Concomitant]
     Route: 048
  3. HERBAL EXTRACT NOS/ASCORBIC ACID/SCOPOLIA CARNICALA EXTRACT/SENNA ALEXANDRINA FRUIT [Concomitant]
     Dates: start: 20130216, end: 20130221
  4. VINPOCETINE [Concomitant]
     Dates: start: 20130216, end: 20130221
  5. SALVIA MILTIORRHIZA [Concomitant]
     Dates: start: 20130216, end: 20130221

REACTIONS (10)
  - Deafness transitory [Recovered/Resolved]
  - Feeling abnormal [Not Recovered/Not Resolved]
  - Yawning [Not Recovered/Not Resolved]
  - Oropharyngeal pain [Not Recovered/Not Resolved]
  - Abdominal pain [Unknown]
  - Constipation [Unknown]
  - Rash erythematous [Recovered/Resolved]
  - Pruritus [Not Recovered/Not Resolved]
  - Dizziness [Not Recovered/Not Resolved]
  - Vision blurred [Not Recovered/Not Resolved]
